FAERS Safety Report 21838315 (Version 1)
Quarter: 2023Q1

REPORT INFORMATION
  Report Type: Spontaneous
  Country: US (occurrence: None)
  Receive Date: 20230107
  Receipt Date: 20230107
  Transmission Date: 20230418
  Serious: No
  Sender: FDA-Public Use
  Company Number: None

PATIENT
  Age: 7 Year
  Sex: Male
  Weight: 20.7 kg

DRUGS (1)
  1. MONTELUKAST [Suspect]
     Active Substance: MONTELUKAST SODIUM
     Indication: Asthma
     Dates: start: 20190905, end: 20221104

REACTIONS (4)
  - Sleep terror [None]
  - Somnambulism [None]
  - Anger [None]
  - Drug withdrawal syndrome [None]

NARRATIVE: CASE EVENT DATE: 20221227
